FAERS Safety Report 20311797 (Version 1)
Quarter: 2022Q1

REPORT INFORMATION
  Report Type: Spontaneous
  Country: CN (occurrence: CN)
  Receive Date: 20220108
  Receipt Date: 20220108
  Transmission Date: 20220423
  Serious: Yes (Hospitalization)
  Sender: FDA-Public Use
  Company Number: CN-SA-SAC20220104000066

PATIENT
  Age: 38 Year
  Sex: Female

DRUGS (2)
  1. ENOXAPARIN SODIUM [Suspect]
     Active Substance: ENOXAPARIN SODIUM
     Dosage: 40 MG, 1X
     Route: 041
     Dates: start: 20211118, end: 20211118
  2. ARGATROBAN [Concomitant]
     Active Substance: ARGATROBAN
     Indication: Anticoagulant therapy

REACTIONS (1)
  - Hypoaesthesia [Recovered/Resolved]

NARRATIVE: CASE EVENT DATE: 20211118
